FAERS Safety Report 5628098-3 (Version None)
Quarter: 2008Q1

REPORT INFORMATION
  Report Type: 
  Country: None (occurrence: None)
  Receive Date: 20080215
  Receipt Date: 20080206
  Transmission Date: 20080703
  Serious: Yes (Other)
  Sender: FDA-Public Use
  Company Number: GB-ELI_LILLY_AND_COMPANY-GB200802001453

PATIENT
  Sex: Male
  Weight: 54.7 kg

DRUGS (1)
  1. ATOMOXETINE HCL [Suspect]
     Indication: ATTENTION DEFICIT/HYPERACTIVITY DISORDER
     Dosage: 70 MG, UNKNOWN
     Route: 048
     Dates: start: 20070614, end: 20070901

REACTIONS (2)
  - EPISTAXIS [None]
  - HEADACHE [None]
